FAERS Safety Report 4631142-3 (Version None)
Quarter: 2005Q2

REPORT INFORMATION
  Report Type: 
  Country: None (occurrence: None)
  Receive Date: 20050407
  Receipt Date: 20050407
  Transmission Date: 20051028
  Serious: Yes (Hospitalization)
  Sender: FDA-Public Use
  Company Number: None

PATIENT
  Age: 63 Year
  Sex: Male

DRUGS (1)
  1. ALEVE [Suspect]
     Indication: BACK PAIN
     Dosage: 220 MG     4-5 TIMES/DAY   ORAL
     Route: 048

REACTIONS (3)
  - OESOPHAGEAL PERFORATION [None]
  - PLEURAL EFFUSION [None]
  - ULCER [None]
